FAERS Safety Report 13588438 (Version 1)
Quarter: 2017Q2

REPORT INFORMATION
  Report Type: Spontaneous
  Country: US (occurrence: US)
  Receive Date: 20170529
  Receipt Date: 20170529
  Transmission Date: 20170830
  Serious: No
  Sender: FDA-Public Use
  Company Number: US-BAUSCH-BL-2017-001803

PATIENT
  Age: 75 Year
  Sex: Male
  Weight: 68.55 kg

DRUGS (2)
  1. PROLENSA [Suspect]
     Active Substance: BROMFENAC SODIUM
     Indication: IRITIS
     Dosage: 2-4 YEARS AGO, INSTILLED IN THE RIGHT EYE
     Route: 047
  2. LOTEMAX [Suspect]
     Active Substance: LOTEPREDNOL ETABONATE
     Indication: IRITIS
     Dosage: 2-4 YEARS AGO, INSTILLED IN THE RIGHT EYE
     Route: 047

REACTIONS (1)
  - Scleral discolouration [Not Recovered/Not Resolved]

NARRATIVE: CASE EVENT DATE: 20170118
